FAERS Safety Report 12714803 (Version 2)
Quarter: 2016Q3

REPORT INFORMATION
  Report Type: Spontaneous
  Country: CO (occurrence: CO)
  Receive Date: 20160905
  Receipt Date: 20160912
  Transmission Date: 20161109
  Serious: Yes (Hospitalization)
  Sender: FDA-Public Use
  Company Number: CO-ROCHE-1824955

PATIENT
  Age: 70 Year
  Sex: Male

DRUGS (7)
  1. ASA [Concomitant]
     Active Substance: ASPIRIN
     Dosage: 300
     Route: 065
  2. CLOPIDOGREL [Concomitant]
     Active Substance: CLOPIDOGREL BISULFATE
     Route: 065
  3. ENOXAPARINA [Concomitant]
     Active Substance: ENOXAPARIN
     Dosage: 30
     Route: 042
  4. METALYSE [Suspect]
     Active Substance: TENECTEPLASE
     Indication: ACUTE MYOCARDIAL INFARCTION
     Dosage: 50MG/10ML STRENGTH, 35 MG IN BOLUS
     Route: 042
     Dates: start: 20160822
  5. ATORVASTATINA [Concomitant]
     Active Substance: ATORVASTATIN
     Route: 065
  6. TIROFIBAN [Suspect]
     Active Substance: TIROFIBAN
     Indication: THROMBOSIS
     Dosage: 50MG PLUS 200ML OF SALINE SOLUTION, 32CC IN BOLUS AND 16CC PER HOUR
     Route: 042
     Dates: start: 20160822
  7. NITROGLICERINA [Concomitant]
     Active Substance: NITROGLYCERIN
     Dosage: 0.2
     Route: 065

REACTIONS (3)
  - Drug ineffective [Unknown]
  - Haematemesis [Recovered/Resolved]
  - Cerebral haemorrhage [Not Recovered/Not Resolved]

NARRATIVE: CASE EVENT DATE: 20160823
